FAERS Safety Report 11596742 (Version 1)
Quarter: 2015Q4

REPORT INFORMATION
  Report Type: Spontaneous
  Country: US (occurrence: None)
  Receive Date: 20151005
  Receipt Date: 20151005
  Transmission Date: 20160304
  Serious: Yes (Other)
  Sender: FDA-Public Use
  Company Number: None

PATIENT
  Age: 29 Year
  Sex: Female
  Weight: 86.18 kg

DRUGS (16)
  1. BACLOFEN PUMP [Concomitant]
  2. TURMERIC [Concomitant]
     Active Substance: TURMERIC
  3. VITAMIN C [Concomitant]
     Active Substance: ASCORBIC ACID
  4. STANDING FRAME [Concomitant]
  5. OXYBUTYNIN [Concomitant]
     Active Substance: OXYBUTYNIN
  6. COLACE [Concomitant]
     Active Substance: DOCUSATE SODIUM
  7. CAVA FILER [Concomitant]
  8. RT300 FES STIM BIKE [Concomitant]
  9. LAXATIVES [Concomitant]
     Active Substance: UNSPECIFIED INGREDIENT
  10. MIDODRINE [Concomitant]
     Active Substance: MIDODRINE
  11. SERTRALINE [Concomitant]
     Active Substance: SERTRALINE HYDROCHLORIDE
  12. MULTI [Concomitant]
  13. HAIR SKIN AND NAILS VITAMIN [Concomitant]
  14. XARELTO [Suspect]
     Active Substance: RIVAROXABAN
     Indication: DEEP VEIN THROMBOSIS
     Dosage: 1 PILL ONCE DAILY
     Route: 048
  15. WHEELCHAIR [Concomitant]
     Active Substance: DEVICE
  16. D3 [Concomitant]
     Active Substance: 25-HYDROXYCHOLECALCIFEROL, 5-TRANS-

REACTIONS (1)
  - Alopecia [None]

NARRATIVE: CASE EVENT DATE: 20141202
